FAERS Safety Report 7264116-7 (Version None)
Quarter: 2011Q1

REPORT INFORMATION
  Report Type: 
  Country: None (occurrence: None)
  Receive Date: 20110130
  Receipt Date: 20110119
  Transmission Date: 20110831
  Serious: Yes (Other)
  Sender: FDA-Public Use
  Company Number: GB-BRISTOL-MYERS SQUIBB COMPANY-15514110

PATIENT
  Age: 60 Year

DRUGS (7)
  1. CETIRIZINE [Suspect]
     Route: 065
  2. ALLOPURINOL [Suspect]
     Route: 065
  3. COLCHICINE [Suspect]
     Route: 065
  4. DOXAZOSIN [Suspect]
     Route: 065
  5. VALSARTAN [Suspect]
     Route: 065
  6. METFORMIN HCL [Suspect]
     Route: 065
  7. MIRTAZAPINE [Suspect]
     Indication: DEPRESSION
     Route: 065

REACTIONS (1)
  - PANCREATITIS ACUTE [None]
